FAERS Safety Report 9849425 (Version 1)
Quarter: 2014Q1

REPORT INFORMATION
  Report Type: Spontaneous
  Country: DE (occurrence: DE)
  Receive Date: 20140128
  Receipt Date: 20140128
  Transmission Date: 20141002
  Serious: Yes (Hospitalization, Other)
  Sender: FDA-Public Use
  Company Number: DE-B.I. PHARMACEUTICALS,INC./RIDGEFIELD-2014-BI-02719DE

PATIENT
  Sex: Male

DRUGS (15)
  1. PRADAXA [Suspect]
     Indication: ATRIAL FIBRILLATION
     Dosage: 2 ANZ
     Route: 048
     Dates: start: 20121115
  2. PRADAXA [Suspect]
     Indication: ATRIAL FIBRILLATION
  3. ASS 100 [Suspect]
     Route: 048
  4. ASS 500 [Suspect]
     Route: 048
  5. SIMVASTATIN [Concomitant]
     Dosage: 20 MG
     Route: 048
  6. DIGIMERCK MINOR 0.07 [Concomitant]
     Dosage: 0.07 MG
     Route: 048
  7. ALLOPURINOL [Concomitant]
     Dosage: DOSE PER APPLICATION: 300 MG: 1-0-0.5
     Route: 048
  8. L-THYROXIN 25 [Concomitant]
     Indication: HYPERTHYROIDISM
     Dosage: 1 ANZ
     Route: 048
  9. L-THYROXIN 25 [Concomitant]
     Dosage: 25 MCG
  10. FERRO SANOL DUODENAL [Concomitant]
     Dosage: 2 ANZ
     Dates: start: 20131120
  11. TORASEMID [Concomitant]
     Dosage: 20 MG
     Route: 048
  12. MCP TROPFEN [Concomitant]
     Indication: NAUSEA
     Dosage: 90 ANZ
     Route: 048
     Dates: start: 20131120
  13. PANTOPRAZOL [Concomitant]
     Dosage: 80 MG
     Route: 048
     Dates: start: 20131120
  14. NEBILET [Concomitant]
     Indication: CARDIAC FAILURE
     Dosage: 2.5 MCG
  15. DELMUNO [Concomitant]
     Dosage: 12.5/12.5 MG (1-0-0)

REACTIONS (14)
  - Gastric ulcer [Unknown]
  - Melaena [Unknown]
  - Renal failure chronic [Unknown]
  - Renal failure acute [Unknown]
  - Cardiac failure [Unknown]
  - Oedema peripheral [Unknown]
  - Dyspnoea [Unknown]
  - Gastrointestinal haemorrhage [Unknown]
  - General physical health deterioration [Unknown]
  - Blood pressure diastolic decreased [Unknown]
  - Gastritis [Unknown]
  - Pleural effusion [Unknown]
  - Ascites [Unknown]
  - Hyperthyroidism [Unknown]
